FAERS Safety Report 6171155-6 (Version None)
Quarter: 2009Q2

REPORT INFORMATION
  Report Type: 
  Country: None (occurrence: None)
  Receive Date: 20090429
  Receipt Date: 20090422
  Transmission Date: 20091009
  Serious: Yes (Other)
  Sender: FDA-Public Use
  Company Number: US-ASTRAZENECA-2009UW10501

PATIENT
  Age: 60 Year
  Sex: Female

DRUGS (1)
  1. PRILOSEC [Suspect]
     Route: 048

REACTIONS (1)
  - SWELLING [None]
